FAERS Safety Report 4314592-4 (Version None)
Quarter: 2004Q1

REPORT INFORMATION
  Report Type: 
  Country: None (occurrence: None)
  Receive Date: 20040308
  Receipt Date: 20040301
  Transmission Date: 20041129
  Serious: Yes (Hospitalization)
  Sender: FDA-Public Use
  Company Number: 2004201735CH

PATIENT
  Sex: Female

DRUGS (7)
  1. ALDACTONE [Suspect]
     Dosage: 100 MG, DAILY, ORAL
     Route: 048
     Dates: start: 20031101, end: 20040130
  2. TOREM (TORASEMIDE) TABLET [Suspect]
     Dosage: 20 MG, DAILY, ORAL
     Route: 048
  3. INDERAL [Concomitant]
  4. OMEPRAZOLE [Concomitant]
  5. FOLVITE [Concomitant]
  6. NITRODERM [Concomitant]
  7. INSULIN MIXTARD (INSULIN INJECTION, ISOPHANE) [Concomitant]

REACTIONS (8)
  - CARDIOGENIC SHOCK [None]
  - DYSPNOEA [None]
  - HEART RATE DECREASED [None]
  - HYPERKALAEMIA [None]
  - OSTEOMYELITIS [None]
  - POST PROCEDURAL COMPLICATION [None]
  - RENAL FAILURE [None]
  - SEPTIC SHOCK [None]
